FAERS Safety Report 4656605-6 (Version None)
Quarter: 2005Q2

REPORT INFORMATION
  Report Type: 
  Country: None (occurrence: None)
  Receive Date: 20050509
  Receipt Date: 20050323
  Transmission Date: 20051028
  Serious: Yes (Death, Life-Threatening, Hospitalization)
  Sender: FDA-Public Use
  Company Number: CA-NOVOPROD-243245

PATIENT
  Age: 80 Year
  Sex: Male

DRUGS (1)
  1. NIASTASE [Suspect]
     Indication: CEREBRAL HAEMORRHAGE
     Dosage: 3.4 MG, QD
     Route: 042
     Dates: start: 20050315, end: 20050315

REACTIONS (2)
  - CONCOMITANT DISEASE PROGRESSION [None]
  - HYDROCEPHALUS [None]
